FAERS Safety Report 14141809 (Version 6)
Quarter: 2018Q2

REPORT INFORMATION
  Report Type: Spontaneous
  Country: DK (occurrence: DK)
  Receive Date: 20171030
  Receipt Date: 20180530
  Transmission Date: 20180711
  Serious: Yes (Hospitalization, Other)
  Sender: FDA-Public Use
  Company Number: DK-PFIZER INC-2017461936

PATIENT
  Age: 52 Year
  Sex: Male

DRUGS (5)
  1. WARFARIN [Interacting]
     Active Substance: WARFARIN
     Dosage: 45 MG, (45 MG/WEEK)
     Route: 065
  2. VERAPAMIL [Interacting]
     Active Substance: VERAPAMIL HYDROCHLORIDE
     Dosage: 120 MG, BID
     Route: 065
  3. LANSOPRAZOLE. [Interacting]
     Active Substance: LANSOPRAZOLE
     Dosage: 15 MG, QD
     Route: 065
  4. SERTRALINE HCL [Suspect]
     Active Substance: SERTRALINE HYDROCHLORIDE
     Dosage: 100 MG, QD
     Route: 065
  5. FLECAINIDE [Interacting]
     Active Substance: FLECAINIDE
     Dosage: 100 MG, BID
     Route: 065

REACTIONS (7)
  - Drug interaction [Unknown]
  - Skin discolouration [Unknown]
  - Myalgia [Unknown]
  - Activated partial thromboplastin time prolonged [Recovered/Resolved]
  - Haemorrhage [Recovering/Resolving]
  - Peripheral swelling [Unknown]
  - Platelet disorder [Recovered/Resolved]
